FAERS Safety Report 12765912 (Version 1)
Quarter: 2016Q3

REPORT INFORMATION
  Report Type: Spontaneous
  Country: US (occurrence: US)
  Receive Date: 20160920
  Receipt Date: 20160920
  Transmission Date: 20161109
  Serious: Yes (Disabling)
  Sender: FDA-Public Use
  Company Number: None

PATIENT
  Age: 71 Year
  Sex: Male
  Weight: 67.5 kg

DRUGS (4)
  1. FORTEO [Suspect]
     Active Substance: TERIPARATIDE
     Indication: OSTEOPOROSIS
     Route: 058
     Dates: start: 20160707, end: 20160826
  2. DIAZEPAM. [Concomitant]
     Active Substance: DIAZEPAM
  3. VITAMINS [Suspect]
     Active Substance: VITAMINS
  4. FINASTERIDE. [Suspect]
     Active Substance: FINASTERIDE

REACTIONS (3)
  - Fatigue [None]
  - Memory impairment [None]
  - Lethargy [None]

NARRATIVE: CASE EVENT DATE: 20160826
